FAERS Safety Report 12554585 (Version 2)
Quarter: 2016Q3

REPORT INFORMATION
  Report Type: Report from Study
  Country: CA (occurrence: CA)
  Receive Date: 20160713
  Receipt Date: 20160719
  Transmission Date: 20161109
  Serious: Yes (Other)
  Sender: FDA-Public Use
  Company Number: PHHY2016CA035773

PATIENT
  Sex: Male

DRUGS (4)
  1. TAFINLAR [Suspect]
     Active Substance: DABRAFENIB MESYLATE
     Dosage: UNK
     Route: 048
     Dates: end: 20160513
  2. MEKINIST [Suspect]
     Active Substance: TRAMETINIB DIMETHYL SULFOXIDE
     Dosage: UNK
     Route: 048
     Dates: end: 20160513
  3. TAFINLAR [Suspect]
     Active Substance: DABRAFENIB MESYLATE
     Indication: METASTATIC MALIGNANT MELANOMA
     Dosage: 300 MG, QD
     Route: 048
     Dates: start: 20160205
  4. MEKINIST [Suspect]
     Active Substance: TRAMETINIB DIMETHYL SULFOXIDE
     Indication: METASTATIC MALIGNANT MELANOMA
     Dosage: 1 DF, QD
     Route: 048
     Dates: start: 20160205

REACTIONS (9)
  - Pain [Unknown]
  - Decreased appetite [Unknown]
  - Cerebral disorder [Unknown]
  - Pyrexia [Not Recovered/Not Resolved]
  - Rash generalised [Unknown]
  - Speech disorder [Unknown]
  - Hypokinesia [Unknown]
  - Nausea [Unknown]
  - Blood glucose increased [Unknown]
